FAERS Safety Report 6420657-3 (Version None)
Quarter: 2009Q4

REPORT INFORMATION
  Report Type: 
  Country: None (occurrence: None)
  Receive Date: 20091029
  Receipt Date: 20091019
  Transmission Date: 20100525
  Serious: Yes (Other)
  Sender: FDA-Public Use
  Company Number: US-JNJCH-2009027811

PATIENT
  Age: 48 Year
  Sex: Male
  Weight: 79.4 kg

DRUGS (1)
  1. BENADRYL [Suspect]
     Indication: SWELLING
     Dosage: TEXT:UNSPECIFIED
     Route: 065

REACTIONS (2)
  - CONDITION AGGRAVATED [None]
  - OFF LABEL USE [None]
